FAERS Safety Report 6629640-6 (Version None)
Quarter: 2010Q1

REPORT INFORMATION
  Report Type: 
  Country: None (occurrence: None)
  Receive Date: 20100310
  Receipt Date: 20100310
  Transmission Date: 20100710
  Serious: Yes (Other)
  Sender: FDA-Public Use
  Company Number: None

PATIENT
  Age: 48 Year
  Sex: Female
  Weight: 77.1115 kg

DRUGS (5)
  1. DYAZIDE [Suspect]
     Indication: PREMENSTRUAL SYNDROME
     Dosage: 1 DAILY ORAL
     Route: 048
     Dates: start: 20090901, end: 20100101
  2. TRILEPTAL [Concomitant]
  3. PROZAC [Concomitant]
  4. XANAX [Concomitant]
  5. ESTRADIOL [Concomitant]

REACTIONS (5)
  - BLOOD SODIUM DECREASED [None]
  - FALL [None]
  - HEART RATE DECREASED [None]
  - MALAISE [None]
  - SYNCOPE [None]
